FAERS Safety Report 5024057-2 (Version None)
Quarter: 2006Q2

REPORT INFORMATION
  Report Type: 
  Country: None (occurrence: None)
  Receive Date: 20060612
  Receipt Date: 20060601
  Transmission Date: 20061013
  Serious: No
  Sender: FDA-Public Use
  Company Number: US-MERCK-0606USA00304

PATIENT
  Age: 54 Year
  Sex: Male
  Weight: 83 kg

DRUGS (5)
  1. INVANZ [Suspect]
     Indication: OSTEOMYELITIS
     Route: 042
     Dates: start: 20060505, end: 20060513
  2. LIPITOR [Concomitant]
     Route: 065
  3. ADVAIR DISKUS 100/50 [Concomitant]
     Route: 055
  4. ASPIRIN [Concomitant]
     Route: 065
  5. SPIRIVA [Concomitant]
     Route: 055

REACTIONS (4)
  - ASTHMA [None]
  - DYSPNOEA [None]
  - ECZEMA [None]
  - WHEEZING [None]
